FAERS Safety Report 7225533-4 (Version None)
Quarter: 2011Q1

REPORT INFORMATION
  Report Type: 
  Country: None (occurrence: None)
  Receive Date: 20110113
  Receipt Date: 20110110
  Transmission Date: 20110831
  Serious: Yes (Death, Life-Threatening, Hospitalization)
  Sender: FDA-Public Use
  Company Number: FR-ASTRAZENECA-2011SE01482

PATIENT
  Age: 29032 Day
  Sex: Female

DRUGS (11)
  1. SUCCINYLCHOLINE CHLORIDE [Suspect]
     Dosage: 100 MG
     Route: 042
     Dates: start: 20101109
  2. LORAZEPAM [Concomitant]
  3. VOLTAREN [Concomitant]
  4. ATARAX [Concomitant]
  5. HYPERIUM [Concomitant]
  6. LANZOR [Concomitant]
  7. ULTIVA [Suspect]
     Dosage: 3 MG
     Route: 042
     Dates: start: 20101109
  8. TRIMEBUTINE [Concomitant]
  9. DIPRIVAN [Suspect]
     Dosage: 180 MG
     Route: 042
     Dates: start: 20101109
  10. COAPROVEL [Concomitant]
  11. NIMBEX [Suspect]
     Dosage: 10 MG
     Route: 042
     Dates: start: 20101109

REACTIONS (1)
  - ANAPHYLACTIC SHOCK [None]
